FAERS Safety Report 24132218 (Version 1)
Quarter: 2024Q3

REPORT INFORMATION
  Report Type: Report from Study
  Country: US (occurrence: US)
  Receive Date: 20240724
  Receipt Date: 20240724
  Transmission Date: 20241016
  Serious: Yes (Disabling)
  Sender: JOHNSON AND JOHNSON
  Company Number: US-JNJFOC-20240710279

PATIENT
  Age: 81 Year
  Sex: Female
  Weight: 58.2 kg

DRUGS (17)
  1. SELEXIPAG [Suspect]
     Active Substance: SELEXIPAG
     Indication: Pulmonary arterial hypertension
     Dosage: UPTRAVI 200MCG ORALLY
     Route: 048
     Dates: end: 20240630
  2. SELEXIPAG [Suspect]
     Active Substance: SELEXIPAG
     Route: 048
  3. NIFEDIPINE [Concomitant]
     Active Substance: NIFEDIPINE
  4. SILDENAFIL CITRATE [Concomitant]
     Active Substance: SILDENAFIL CITRATE
  5. ROSUVASTATIN [Concomitant]
     Active Substance: ROSUVASTATIN
  6. OMEPRAZOLE [Concomitant]
     Active Substance: OMEPRAZOLE
  7. JARDIANCE [Concomitant]
     Active Substance: EMPAGLIFLOZIN
  8. FUROSEMIDE [Concomitant]
     Active Substance: FUROSEMIDE
  9. NIFEDIPINE [Concomitant]
     Active Substance: NIFEDIPINE
  10. ASPIRIN [Concomitant]
     Active Substance: ASPIRIN
  11. PLAVIX [Concomitant]
     Active Substance: CLOPIDOGREL BISULFATE
  12. LEVOTHYROXINE [Concomitant]
     Active Substance: LEVOTHYROXINE\LEVOTHYROXINE SODIUM
  13. ACYCLOVIR [Concomitant]
     Active Substance: ACYCLOVIR
  14. URSODIOL [Concomitant]
     Active Substance: URSODIOL
  15. CYANOCOBALAMIN [Concomitant]
     Active Substance: CYANOCOBALAMIN
  16. MAGNESIUM OXIDE [Concomitant]
     Active Substance: MAGNESIUM OXIDE
  17. ASCORBIC ACID [Concomitant]
     Active Substance: ASCORBIC ACID

REACTIONS (5)
  - Disability [Unknown]
  - Headache [Recovering/Resolving]
  - Diarrhoea [Recovering/Resolving]
  - Asthenia [Recovering/Resolving]
  - Weight decreased [Recovering/Resolving]
